FAERS Safety Report 8020360-2 (Version None)
Quarter: 2012Q1

REPORT INFORMATION
  Report Type: 
  Country: None (occurrence: None)
  Receive Date: 20120103
  Receipt Date: 20110222
  Transmission Date: 20120608
  Serious: No
  Sender: FDA-Public Use
  Company Number: US-ABBOTT-11P-163-0707841-00

PATIENT

DRUGS (1)
  1. DEPACON [Suspect]
     Indication: CONVULSION
     Dosage: POSSIBLY ADMINISTERED 100 MG, A 10TH OF THE TOTAL THAT PATIENT WAS SUPPOSED TO RECEIVE.
     Route: 042

REACTIONS (1)
  - INCORRECT ROUTE OF DRUG ADMINISTRATION [None]
